FAERS Safety Report 17244147 (Version 1)
Quarter: 2020Q1

REPORT INFORMATION
  Report Type: Spontaneous
  Country: US (occurrence: US)
  Receive Date: 20200107
  Receipt Date: 20200107
  Transmission Date: 20200409
  Serious: No
  Sender: FDA-Public Use
  Company Number: US-GALDERMA-US19060780

PATIENT
  Sex: Female

DRUGS (1)
  1. METRONIDAZOLE TOPICAL GEL, 0.75% [Suspect]
     Active Substance: METRONIDAZOLE
     Indication: BACTERIAL VAGINOSIS
     Dosage: 0.75 %
     Route: 061

REACTIONS (3)
  - Product name confusion [Recovered/Resolved]
  - Product dispensing error [Recovered/Resolved]
  - Intentional product use issue [Recovered/Resolved]
